FAERS Safety Report 4868726-3 (Version None)
Quarter: 2005Q4

REPORT INFORMATION
  Report Type: 
  Country: None (occurrence: None)
  Receive Date: 20051223
  Receipt Date: 20051215
  Transmission Date: 20060501
  Serious: Yes (Hospitalization)
  Sender: FDA-Public Use
  Company Number: 2005170264

PATIENT
  Age: 71 Year
  Sex: Male
  Weight: 21.7727 kg

DRUGS (3)
  1. SOLU-MEDROL [Suspect]
     Indication: HAEMORRHAGIC DISORDER
     Dosage: INTRAVENOUS
     Route: 042
  2. ALL OTHER THERAPEUTIC PRODUCTS [Concomitant]
  3. IMMUNOGLOBULINES HUMAINES CNTS (IMMUNOGLOBULIN HUMAN NORMAL) [Concomitant]

REACTIONS (8)
  - BRONCHITIS [None]
  - CHRONIC OBSTRUCTIVE PULMONARY DISEASE [None]
  - ENTEROBACTER INFECTION [None]
  - GASTROINTESTINAL FUNGAL INFECTION [None]
  - LUNG DISORDER [None]
  - ORAL CANDIDIASIS [None]
  - PSEUDOMONAS INFECTION [None]
  - SUPERINFECTION [None]
